FAERS Safety Report 5292135-9 (Version None)
Quarter: 2007Q2

REPORT INFORMATION
  Report Type: 
  Country: None (occurrence: None)
  Receive Date: 20070410
  Receipt Date: 20070409
  Transmission Date: 20071010
  Serious: Yes (Other)
  Sender: FDA-Public Use
  Company Number: US-GLAXOSMITHKLINE-A0646245A

PATIENT

DRUGS (1)
  1. AVODART [Suspect]
     Indication: DRUG USE FOR UNKNOWN INDICATION
     Route: 048
     Dates: start: 20060317, end: 20060922

REACTIONS (4)
  - BREAST SWELLING [None]
  - BREAST TENDERNESS [None]
  - DRUG INEFFECTIVE [None]
  - URINARY INCONTINENCE [None]
